FAERS Safety Report 23403054 (Version 1)
Quarter: 2024Q1

REPORT INFORMATION
  Report Type: Spontaneous
  Country: AU (occurrence: AU)
  Receive Date: 20240115
  Receipt Date: 20240115
  Transmission Date: 20240410
  Serious: Yes (Death, Other)
  Sender: FDA-Public Use
  Company Number: AU-CIPLA LTD.-2024AU00461

PATIENT

DRUGS (6)
  1. LEVETIRACETAM [Suspect]
     Active Substance: LEVETIRACETAM
     Indication: Focal dyscognitive seizures
     Dosage: 1500 MILLIGRAM/DAY
     Route: 065
  2. LEVETIRACETAM [Suspect]
     Active Substance: LEVETIRACETAM
     Indication: Partial seizures with secondary generalisation
     Dosage: UNK
     Route: 065
  3. LAMOTRIGINE [Suspect]
     Active Substance: LAMOTRIGINE
     Indication: Focal dyscognitive seizures
     Dosage: 400 MILLIGRAM/DAY
     Route: 065
  4. LAMOTRIGINE [Suspect]
     Active Substance: LAMOTRIGINE
     Indication: Partial seizures with secondary generalisation
     Dosage: UNK
     Route: 065
  5. CLOBAZAM [Suspect]
     Active Substance: CLOBAZAM
     Indication: Focal dyscognitive seizures
     Dosage: 10 MILLIGRAM/DAY
     Route: 065
  6. CLOBAZAM [Suspect]
     Active Substance: CLOBAZAM
     Indication: Partial seizures with secondary generalisation
     Dosage: UNK
     Route: 065

REACTIONS (3)
  - Sudden unexplained death in epilepsy [Fatal]
  - Sudden cardiac death [Fatal]
  - Generalised tonic-clonic seizure [Unknown]
